FAERS Safety Report 15044407 (Version 1)
Quarter: 2018Q2

REPORT INFORMATION
  Report Type: Spontaneous
  Country: US (occurrence: US)
  Receive Date: 20180531
  Receipt Date: 20180531
  Transmission Date: 20180711
  Serious: Yes (Other)
  Sender: FDA-Public Use
  Company Number: None

PATIENT
  Age: 10 Year
  Sex: Male
  Weight: 8.4 kg

DRUGS (1)
  1. VIGABATRIN. [Suspect]
     Active Substance: VIGABATRIN
     Route: 048

REACTIONS (3)
  - Inappropriate schedule of drug administration [None]
  - Insurance issue [None]
  - Product availability issue [None]

NARRATIVE: CASE EVENT DATE: 20180517
